FAERS Safety Report 8387979-0 (Version None)
Quarter: 2012Q2

REPORT INFORMATION
  Report Type: 
  Country: None (occurrence: None)
  Receive Date: 20120525
  Receipt Date: 20120521
  Transmission Date: 20120825
  Serious: Yes (Other)
  Sender: FDA-Public Use
  Company Number: PHHY2012AT044227

PATIENT
  Sex: Male

DRUGS (1)
  1. METOHEXAL RETARD [Suspect]
     Indication: HYPERTENSION
     Dosage: 1 DF, BID
     Route: 048

REACTIONS (3)
  - DRY MOUTH [None]
  - MALAISE [None]
  - SLEEP DISORDER [None]
